FAERS Safety Report 8439115-X (Version None)
Quarter: 2012Q2

REPORT INFORMATION
  Report Type: 
  Country: None (occurrence: None)
  Receive Date: 20120615
  Receipt Date: 20120606
  Transmission Date: 20120825
  Serious: Yes (Death)
  Sender: FDA-Public Use
  Company Number: US-BRISTOL-MYERS SQUIBB COMPANY-16468068

PATIENT
  Age: 50 Year
  Sex: Male

DRUGS (11)
  1. YERVOY [Suspect]
     Indication: METASTATIC MALIGNANT MELANOMA
     Dosage: CATALOG NO:980-401  2MAR2012
     Route: 042
     Dates: start: 20120302, end: 20120314
  2. PANTOPRAZOLE [Concomitant]
  3. HYDROCODONE [Concomitant]
  4. DEXAMETHASONE [Concomitant]
  5. M.V.I. [Concomitant]
  6. DILAUDID [Concomitant]
  7. TRAMADOL HCL [Concomitant]
  8. COMPAZINE [Concomitant]
  9. KEPPRA [Concomitant]
  10. ZOFRAN [Concomitant]
  11. FERROUS SULFATE TAB [Concomitant]

REACTIONS (1)
  - NEOPLASM MALIGNANT [None]
